FAERS Safety Report 4707099-3 (Version None)
Quarter: 2005Q3

REPORT INFORMATION
  Report Type: 
  Country: None (occurrence: None)
  Receive Date: 20050701
  Receipt Date: 20050622
  Transmission Date: 20060218
  Serious: Yes (Disabling)
  Sender: FDA-Public Use
  Company Number: 2005065317

PATIENT
  Age: 60 Year
  Sex: Male

DRUGS (1)
  1. VIAGRA [Suspect]
     Indication: ERECTILE DYSFUNCTION
     Dosage: 50 MG (50 MG, AS NECESSARY), ORAL
     Route: 048

REACTIONS (6)
  - DIABETIC RETINOPATHY [None]
  - ECONOMIC PROBLEM [None]
  - REFUSAL OF TREATMENT BY PATIENT [None]
  - RETINAL VASCULAR DISORDER [None]
  - VASCULAR RUPTURE [None]
  - VISUAL ACUITY REDUCED [None]
